FAERS Safety Report 7523636-8 (Version None)
Quarter: 2011Q2

REPORT INFORMATION
  Report Type: 
  Country: None (occurrence: None)
  Receive Date: 20110603
  Receipt Date: 20110527
  Transmission Date: 20111010
  Serious: Yes (Death, Hospitalization)
  Sender: FDA-Public Use
  Company Number: US-SANOFI-AVENTIS-2011SA034091

PATIENT
  Age: 60 Year
  Sex: Male

DRUGS (2)
  1. PLAVIX [Suspect]
     Dates: start: 20101013
  2. PLAVIX [Suspect]
     Dates: start: 20101013

REACTIONS (3)
  - GASTRIC HAEMORRHAGE [None]
  - CARDIAC ARREST [None]
  - MYOCARDIAL INFARCTION [None]
